FAERS Safety Report 4888716-4 (Version None)
Quarter: 2005Q4

REPORT INFORMATION
  Report Type: 
  Country: None (occurrence: None)
  Receive Date: 20051215
  Receipt Date: 20050517
  Transmission Date: 20060501
  Serious: Yes (Hospitalization)
  Sender: FDA-Public Use
  Company Number: 2005076315

PATIENT
  Age: 40 Year
  Sex: Male
  Weight: 147.419 kg

DRUGS (1)
  1. BEXTRA [Suspect]
     Indication: SHOULDER PAIN

REACTIONS (2)
  - CHEST PAIN [None]
  - HEADACHE [None]
